FAERS Safety Report 6859136-8 (Version None)
Quarter: 2010Q3

REPORT INFORMATION
  Report Type: 
  Country: None (occurrence: None)
  Receive Date: 20100719
  Receipt Date: 20080222
  Transmission Date: 20110219
  Serious: No
  Sender: FDA-Public Use
  Company Number: US-PFIZER INC-2008018448

PATIENT

DRUGS (2)
  1. CHANTIX [Suspect]
     Indication: SMOKING CESSATION THERAPY
  2. ALL OTHER THERAPEUTIC PRODUCTS [Interacting]

REACTIONS (1)
  - DRUG INTERACTION [None]
